FAERS Safety Report 5289106-5 (Version None)
Quarter: 2007Q1

REPORT INFORMATION
  Report Type: 
  Country: None (occurrence: None)
  Receive Date: 20070124
  Receipt Date: 20060626
  Transmission Date: 20070707
  Serious: Yes (Hospitalization)
  Sender: FDA-Public Use
  Company Number: US200604004227

PATIENT
  Age: 82 Year
  Sex: Female
  Weight: 69.4 kg

DRUGS (12)
  1. FORTEO [Suspect]
     Indication: OSTEOPOROSIS
     Dates: start: 20060201, end: 20060401
  2. FORTEO [Suspect]
     Indication: OSTEOPOROSIS
     Dates: start: 20060101
  3. FORTEO [Concomitant]
  4. ESTER-C (CALCIUM ASCORBATE) [Concomitant]
  5. FISH OIL (FISH OIL) [Concomitant]
  6. LEVOXYL [Concomitant]
  7. NIFEDICAL (NIFEDIPINE) [Concomitant]
  8. OMEGA 3 (FISH OIL) [Concomitant]
  9. CALCIUM (CALCIUM) [Concomitant]
  10. PLAVIX [Concomitant]
  11. TOPROL-XL [Concomitant]
  12. ERGOCALCIFEROL/CALCIUM PHOSP/CALCIUM SOD LACT (CALCIUM PHOSPHATE, CALC [Concomitant]

REACTIONS (6)
  - ATRIAL FIBRILLATION [None]
  - FIBROCYSTIC BREAST DISEASE [None]
  - HEADACHE [None]
  - NASAL CONGESTION [None]
  - OEDEMA [None]
  - PNEUMONIA [None]
